FAERS Safety Report 18603462 (Version 3)
Quarter: 2021Q2

REPORT INFORMATION
  Report Type: Spontaneous
  Country: US (occurrence: US)
  Receive Date: 20201210
  Receipt Date: 20210617
  Transmission Date: 20210717
  Serious: Yes (Other)
  Sender: FDA-Public Use
  Company Number: US-SA-2020SA246342

PATIENT
  Age: 56 Year
  Sex: Female

DRUGS (23)
  1. CLARITIN [Concomitant]
     Active Substance: LORATADINE
  2. HYDROCHLOROTHIAZIDE. [Concomitant]
     Active Substance: HYDROCHLOROTHIAZIDE
     Dosage: UNK
  3. XANAX [Concomitant]
     Active Substance: ALPRAZOLAM
  4. DUPIXENT [Suspect]
     Active Substance: DUPILUMAB
     Indication: ASTHMA
     Dosage: 300 MG, QOW
     Route: 058
     Dates: start: 20201115
  5. LOSARTAN. [Concomitant]
     Active Substance: LOSARTAN
  6. ATORVASTATIN [Concomitant]
     Active Substance: ATORVASTATIN
  7. MULTIVITAMINUM [Concomitant]
     Active Substance: VITAMINS
  8. ALBUTEROL [SALBUTAMOL] [Concomitant]
     Active Substance: ALBUTEROL
  9. TRADJENTA [Concomitant]
     Active Substance: LINAGLIPTIN
  10. METOPROLOL. [Concomitant]
     Active Substance: METOPROLOL
  11. GABAPENTIN. [Concomitant]
     Active Substance: GABAPENTIN
  12. OFLOXACIN. [Concomitant]
     Active Substance: OFLOXACIN
  13. NEILMED SINUS RINSE [Concomitant]
     Active Substance: SODIUM BICARBONATE\SODIUM CHLORIDE
  14. BABY ASPIRIN [Concomitant]
     Active Substance: ASPIRIN
  15. ZYRTEC [Concomitant]
     Active Substance: CETIRIZINE HYDROCHLORIDE
  16. AMLODIPINE [Concomitant]
     Active Substance: AMLODIPINE BESYLATE
  17. LANTUS [Concomitant]
     Active Substance: INSULIN GLARGINE
  18. BREO ELLIPTA [Concomitant]
     Active Substance: FLUTICASONE FUROATE\VILANTEROL TRIFENATATE
  19. PREDNISONE. [Concomitant]
     Active Substance: PREDNISONE
  20. HUMALOG [Concomitant]
     Active Substance: INSULIN LISPRO
  21. FLUTICASONE. [Concomitant]
     Active Substance: FLUTICASONE
     Dosage: UNK
  22. THEOPHYLLINE [Concomitant]
     Active Substance: THEOPHYLLINE ANHYDROUS
  23. SPIRIVA [Concomitant]
     Active Substance: TIOTROPIUM BROMIDE MONOHYDRATE

REACTIONS (7)
  - Cataract [Unknown]
  - Headache [Unknown]
  - Photophobia [Unknown]
  - Injection site mass [Unknown]
  - Product use issue [Unknown]
  - Vision blurred [Unknown]
  - Eye pain [Unknown]

NARRATIVE: CASE EVENT DATE: 20201208
